FAERS Safety Report 4574206-5 (Version None)
Quarter: 2005Q1

REPORT INFORMATION
  Report Type: 
  Country: None (occurrence: None)
  Receive Date: 20050204
  Receipt Date: 20041117
  Transmission Date: 20050727
  Serious: Yes (Other)
  Sender: FDA-Public Use
  Company Number: 2004096992

PATIENT
  Age: 49 Year
  Sex: Male
  Weight: 120.2032 kg

DRUGS (11)
  1. CELEBREX [Suspect]
     Indication: OSTEOARTHRITIS
  2. PANTOPRAZOLE (PANTOPRAZOLE0 [Concomitant]
  3. DILTIAZEM HYDROCHLORIDE [Concomitant]
  4. ALL OTHER THERAPEUTIC PRODUCTS (ALL OTHER THERAPEUTIC PRODUCTS) [Concomitant]
  5. SALBUTAMOL (SALBUTAMOL) [Concomitant]
  6. VENLAFAXINE HCL [Concomitant]
  7. METFORMIN HYDROCHLORIDE/ROSIGLITAZONE (METFORMIN HYDROCHLORIDE, ROSIGL [Concomitant]
  8. METOPROLOL TARTRATE [Concomitant]
  9. LORAZEPAM [Concomitant]
  10. ACETYLSALICYLIC ACID SRT [Concomitant]
  11. INDOMETHACIN [Concomitant]

REACTIONS (7)
  - ARTHRITIS [None]
  - CONDITION AGGRAVATED [None]
  - DEPRESSION [None]
  - DIABETES MELLITUS [None]
  - HEPATITIS C [None]
  - STOMACH DISCOMFORT [None]
  - WEIGHT INCREASED [None]
